FAERS Safety Report 5747579-5 (Version None)
Quarter: 2008Q2

REPORT INFORMATION
  Report Type: 
  Country: None (occurrence: None)
  Receive Date: 20080523
  Receipt Date: 20080519
  Transmission Date: 20081010
  Serious: Yes (Other)
  Sender: FDA-Public Use
  Company Number: DE-AVENTIS-200811207DE

PATIENT
  Age: 44 Year
  Sex: Male

DRUGS (1)
  1. CLEXANE [Suspect]
     Dosage: DOSE: 1-0-1
     Route: 058
     Dates: start: 20080408, end: 20080424

REACTIONS (3)
  - ALANINE AMINOTRANSFERASE INCREASED [None]
  - GAMMA-GLUTAMYLTRANSFERASE INCREASED [None]
  - HEPATIC ENZYME INCREASED [None]
